FAERS Safety Report 15171084 (Version 2)
Quarter: 2018Q4

REPORT INFORMATION
  Report Type: Spontaneous
  Country: US (occurrence: US)
  Receive Date: 20180720
  Receipt Date: 20181022
  Transmission Date: 20190204
  Serious: Yes (Other)
  Sender: FDA-Public Use
  Company Number: US-PFIZER INC-2018287454

PATIENT
  Age: 20 Year
  Sex: Female

DRUGS (7)
  1. ETOPOSIDE. [Concomitant]
     Active Substance: ETOPOSIDE
     Indication: CUTANEOUS LYMPHOMA
     Dosage: UNK
  2. FENTANYL. [Concomitant]
     Active Substance: FENTANYL
     Dosage: UNK, PATIENT-CONTROLLED ANALGESIA (PCA)
  3. HYDROMORPHONE HYDROCHLORIDE. [Suspect]
     Active Substance: HYDROMORPHONE HYDROCHLORIDE
     Indication: PAIN
     Dosage: UNK
     Route: 048
  4. BUPROPION. [Concomitant]
     Active Substance: BUPROPION
     Indication: MAJOR DEPRESSION
     Dosage: UNK
  5. FENTANYL. [Concomitant]
     Active Substance: FENTANYL
     Indication: PAIN
     Dosage: UNK
     Route: 042
  6. IBUPROFEN. [Concomitant]
     Active Substance: IBUPROFEN
     Indication: MAJOR DEPRESSION
     Dosage: UNK, AS NEEDED
  7. DEXAMETHASONE. [Concomitant]
     Active Substance: DEXAMETHASONE
     Indication: CUTANEOUS LYMPHOMA
     Dosage: UNK

REACTIONS (2)
  - Neurotoxicity [Recovered/Resolved]
  - Chorea [Recovered/Resolved]
